FAERS Safety Report 8788838 (Version 1)
Quarter: 2012Q4

REPORT INFORMATION
  Report Type: 
  Country: US (occurrence: US)
  Receive Date: 20120915
  Receipt Date: 20120915
  Transmission Date: 20130627
  Serious: Yes (Other)
  Sender: FDA-Public Use
  Company Number: US-ABBOTT-12P-163-0978366-00

PATIENT
  Age: 59 Year
  Sex: Male
  Weight: 104.42 kg

DRUGS (7)
  1. ANDROGEL [Suspect]
     Indication: PRODUCT USED FOR UNKNOWN INDICATION
     Dosage: 2 pumps daily
     Dates: start: 201109
  2. ANDROGEL [Suspect]
     Dosage: 3 pumps daily
  3. ANDROGEL [Suspect]
     Dosage: 4 pumps per day
  4. RAPAFLO [Suspect]
     Indication: URINARY INCONTINENCE
     Dates: start: 2009
  5. GELNIQUE [Suspect]
     Indication: URINARY INCONTINENCE
     Dosage: applies every morning
     Route: 061
     Dates: start: 2009
  6. AMLODIPINE [Suspect]
     Indication: BLOOD PRESSURE
     Dosage: 5 mg daily
     Dates: end: 201201
  7. AMLODIPINE [Suspect]
     Dosage: 10 mg daily
     Dates: start: 201201

REACTIONS (15)
  - Large intestine polyp [Recovered/Resolved]
  - Frequent bowel movements [Not Recovered/Not Resolved]
  - Sleep apnoea syndrome [Not Recovered/Not Resolved]
  - Sleep apnoea syndrome [Not Recovered/Not Resolved]
  - Defaecation urgency [Not Recovered/Not Resolved]
  - Micturition urgency [Not Recovered/Not Resolved]
  - Abdominal pain upper [Not Recovered/Not Resolved]
  - Abdominal pain [Not Recovered/Not Resolved]
  - Nervousness [Not Recovered/Not Resolved]
  - Radiation injury [Unknown]
  - Drug interaction [Unknown]
  - Drug interaction [Unknown]
  - Irritable bowel syndrome [Unknown]
  - Crohn^s disease [Unknown]
  - Hypertension [Unknown]
